FAERS Safety Report 18582398 (Version 2)
Quarter: 2020Q4

REPORT INFORMATION
  Report Type: Spontaneous
  Country: US (occurrence: US)
  Receive Date: 20201205
  Receipt Date: 20201214
  Transmission Date: 20210114
  Serious: Yes (Life-Threatening, Hospitalization, Other)
  Sender: FDA-Public Use
  Company Number: US-AUROBINDO-AUR-APL-2020-056228

PATIENT
  Age: 9 Month
  Sex: Female

DRUGS (14)
  1. TACROLIMUS. [Interacting]
     Active Substance: TACROLIMUS
     Indication: PRODUCT USED FOR UNKNOWN INDICATION
     Dosage: DOSE WAS ADJUSTED TO MAIN GOAL TROUGH LEVELS 10-12
     Route: 048
  2. CISATRACURIUM BESYLATE INJECTION [Suspect]
     Active Substance: CISATRACURIUM BESYLATE
     Indication: PARALYSIS
     Dosage: 3 MCG/KG/HR
     Route: 065
  3. DEXMEDETOMIDINE INJECTION [Interacting]
     Active Substance: DEXMEDETOMIDINE
     Indication: SEDATION
     Dosage: UNK
     Route: 042
  4. EPINEPHRINE. [Concomitant]
     Active Substance: EPINEPHRINE
     Indication: PRODUCT USED FOR UNKNOWN INDICATION
     Dosage: UNK
     Route: 065
  5. FENTANYL. [Suspect]
     Active Substance: FENTANYL
     Dosage: 2 MICROGRAM/KILOGRAM, EVERY HOUR
     Route: 041
  6. FENTANYL. [Suspect]
     Active Substance: FENTANYL
     Dosage: 1 MICROGRAM/KILOGRAM, EVERY HOUR
     Route: 041
  7. DEXMEDETOMIDINE INJECTION [Interacting]
     Active Substance: DEXMEDETOMIDINE
     Dosage: 1 MCG/KG/HOUR
     Route: 041
  8. FENTANYL. [Suspect]
     Active Substance: FENTANYL
     Indication: SEDATION
     Dosage: 3 MCG/KG/DOSE
     Route: 042
  9. FENTANYL. [Suspect]
     Active Substance: FENTANYL
     Dosage: 3 MICROGRAM/KILOGRAM, EVERY HOUR
     Route: 041
  10. PLASMALYTE [Concomitant]
     Active Substance: ELECTROLYTES NOS
     Indication: PRODUCT USED FOR UNKNOWN INDICATION
     Dosage: 40 MILLILITRE PER KILOGRAM
     Route: 065
  11. DEXMEDETOMIDINE INJECTION [Interacting]
     Active Substance: DEXMEDETOMIDINE
     Dosage: 0.08 MCG/KG
     Route: 040
  12. DEXMEDETOMIDINE INJECTION [Interacting]
     Active Substance: DEXMEDETOMIDINE
     Dosage: 1 MCG/KG/HOUR
     Route: 040
  13. NOREPINEPHRINE. [Concomitant]
     Active Substance: NOREPINEPHRINE
     Indication: PRODUCT USED FOR UNKNOWN INDICATION
     Dosage: UNK
     Route: 065
  14. MIDAZOLAM. [Suspect]
     Active Substance: MIDAZOLAM
     Indication: PRODUCT USED FOR UNKNOWN INDICATION
     Dosage: 0.05 MG/KG/DOSE
     Route: 040

REACTIONS (7)
  - Bradycardia [Unknown]
  - Drug level increased [Recovered/Resolved]
  - Agitation [Recovered/Resolved]
  - Sinus bradycardia [Recovered/Resolved]
  - Sinus arrest [Recovered/Resolved]
  - Drug clearance decreased [Recovered/Resolved]
  - Drug interaction [Recovered/Resolved]
